FAERS Safety Report 25394465 (Version 2)
Quarter: 2025Q2

REPORT INFORMATION
  Report Type: Report from Study
  Country: US (occurrence: US)
  Receive Date: 20250604
  Receipt Date: 20250617
  Transmission Date: 20250717
  Serious: No
  Sender: ACADIA PHARMACEUTICALS
  Company Number: US-ACADIA PHARMACEUTICALS INC.-ACA-2025-TRF-006454

PATIENT
  Sex: Female

DRUGS (1)
  1. DAYBUE [Suspect]
     Active Substance: TROFINETIDE
     Indication: Rett syndrome
     Dosage: 75 MILLILITER, QD
     Route: 048

REACTIONS (3)
  - Emotional disorder [Not Recovered/Not Resolved]
  - Screaming [Unknown]
  - Crying [Not Recovered/Not Resolved]
